FAERS Safety Report 25379049 (Version 1)
Quarter: 2025Q2

REPORT INFORMATION
  Report Type: Spontaneous
  Country: US (occurrence: US)
  Receive Date: 20250530
  Receipt Date: 20250530
  Transmission Date: 20250717
  Serious: No
  Sender: BAUSCH AND LOMB
  Company Number: US-BAUSCH-BL-2025-006579

PATIENT
  Age: 72 Year
  Sex: Female

DRUGS (1)
  1. TRULANCE [Suspect]
     Active Substance: PLECANATIDE
     Indication: Irritable bowel syndrome
     Route: 048
     Dates: start: 20250509

REACTIONS (3)
  - Diarrhoea [Unknown]
  - Product temperature excursion issue [Unknown]
  - Physical product label issue [Unknown]

NARRATIVE: CASE EVENT DATE: 20250501
